FAERS Safety Report 4363820-8 (Version None)
Quarter: 2004Q2

REPORT INFORMATION
  Report Type: 
  Country: None (occurrence: None)
  Receive Date: 20040521
  Receipt Date: 20040430
  Transmission Date: 20050107
  Serious: Yes (Hospitalization)
  Sender: FDA-Public Use
  Company Number: WSDF_00395

PATIENT
  Age: 59 Year
  Sex: Female

DRUGS (2)
  1. WINRHO SDF [Suspect]
     Indication: IDIOPATHIC THROMBOCYTOPENIC PURPURA
  2. VANCOMYCIN [Concomitant]

REACTIONS (3)
  - CHOLESTASIS [None]
  - METABOLIC ACIDOSIS [None]
  - RENAL FAILURE [None]
